FAERS Safety Report 20041968 (Version 1)
Quarter: 2021Q4

REPORT INFORMATION
  Report Type: Spontaneous
  Country: IN (occurrence: IN)
  Receive Date: 20211108
  Receipt Date: 20211108
  Transmission Date: 20220303
  Serious: Yes (Other)
  Sender: FDA-Public Use
  Company Number: IN-SUN PHARMACEUTICAL INDUSTRIES LTD-2021R1-316339

PATIENT
  Age: 17 Month
  Sex: Female

DRUGS (3)
  1. EPINEPHRINE [Suspect]
     Active Substance: EPINEPHRINE
     Indication: Right ventricular dysfunction
     Dosage: UNK
     Route: 065
  2. NOREPINEPHRINE [Suspect]
     Active Substance: NOREPINEPHRINE
     Indication: Right ventricular dysfunction
     Dosage: UNK
     Route: 065
  3. MILRINONE [Suspect]
     Active Substance: MILRINONE
     Indication: Right ventricular dysfunction
     Dosage: UNK (0.05 MIC/KG/MIN)
     Route: 065

REACTIONS (1)
  - Ventricular tachycardia [Recovering/Resolving]
